FAERS Safety Report 8068724 (Version 2)
Quarter: 2021Q1

REPORT INFORMATION
  Report Type: Spontaneous
  Country: US (occurrence: US)
  Receive Date: 20110622
  Receipt Date: 20210118
  Transmission Date: 20210420
  Serious: Yes (Other)
  Sender: FDA-Public Use
  Company Number: US-BRACCO-006332

PATIENT
  Age: 77 Year
  Sex: Male

DRUGS (7)
  1. CARISOPRODOL. [Concomitant]
     Active Substance: CARISOPRODOL
  2. CARDIOGEN?82 [Suspect]
     Active Substance: RUBIDIUM CHLORIDE RB-82
     Indication: SCAN MYOCARDIAL PERFUSION
     Dosage: AT REST
     Route: 042
     Dates: start: 20110217, end: 20110217
  3. BABY ASPIRIN [Concomitant]
     Active Substance: ASPIRIN
  4. CRESTOR [Concomitant]
     Active Substance: ROSUVASTATIN CALCIUM
  5. CARDIOGEN?82 [Suspect]
     Active Substance: RUBIDIUM CHLORIDE RB-82
     Indication: CORONARY ARTERY DISEASE
     Dosage: AT STRESS
     Route: 042
     Dates: start: 20110217, end: 20110217
  6. FISH OIL [Concomitant]
     Active Substance: FISH OIL
  7. OMEPRAZOLE. [Concomitant]
     Active Substance: OMEPRAZOLE

REACTIONS (2)
  - Influenza like illness [Unknown]
  - Exposure to radiation [Unknown]

NARRATIVE: CASE EVENT DATE: 20110217
